FAERS Safety Report 4285755-1 (Version None)
Quarter: 2004Q1

REPORT INFORMATION
  Report Type: 
  Country: None (occurrence: None)
  Receive Date: 20040204
  Receipt Date: 20040204
  Transmission Date: 20041129
  Serious: Yes (Hospitalization)
  Sender: FDA-Public Use
  Company Number: None

PATIENT
  Sex: Male
  Weight: 61 kg

DRUGS (1)
  1. CIPRO [Suspect]
     Dosage: 500 MG QD ORAL
     Route: 048
     Dates: start: 20030925, end: 20031004

REACTIONS (2)
  - HYPOAESTHESIA [None]
  - PRURITUS [None]
